FAERS Safety Report 14180514 (Version 3)
Quarter: 2017Q4

REPORT INFORMATION
  Report Type: Spontaneous
  Country: DK (occurrence: DK)
  Receive Date: 20171111
  Receipt Date: 20171221
  Transmission Date: 20180321
  Serious: Yes (Death)
  Sender: FDA-Public Use
  Company Number: DK-TEVA-824130ROM

PATIENT
  Age: 27 Year
  Sex: Male

DRUGS (4)
  1. RISOLID [Suspect]
     Active Substance: CHLORDIAZEPOXIDE
     Indication: RESTLESSNESS
     Dosage: STRENGTH: 25 MG; DOSAGE: 1 TABLET AS NEEDED, MAX 6 TABLETS.
     Route: 048
     Dates: start: 20151228
  2. STESOLID [Suspect]
     Active Substance: DIAZEPAM
     Indication: PRODUCT USED FOR UNKNOWN INDICATION
     Route: 065
  3. OXYCODONHYDROCHLORID ^2CARE4^ [Suspect]
     Active Substance: OXYCODONE HYDROCHLORIDE
     Indication: PAIN
     Dosage: 20 MG, PRN (UP TO 6 TABLETS)
     Route: 048
     Dates: start: 20151026
  4. OXYCONTIN [Suspect]
     Active Substance: OXYCODONE HYDROCHLORIDE
     Indication: PAIN
     Dosage: 360 MILLIGRAM DAILY;
     Route: 048
     Dates: start: 20151109

REACTIONS (2)
  - Toxicity to various agents [Fatal]
  - Overdose [Fatal]

NARRATIVE: CASE EVENT DATE: 20160512
